FAERS Safety Report 8581939-2 (Version None)
Quarter: 2012Q3

REPORT INFORMATION
  Report Type: 
  Country: None (occurrence: None)
  Receive Date: 20120809
  Receipt Date: 20120727
  Transmission Date: 20120928
  Serious: Yes (Hospitalization)
  Sender: FDA-Public Use
  Company Number: NO-FRI-1000027590

PATIENT
  Sex: Male

DRUGS (8)
  1. ZOPIKLON MYLAN [Concomitant]
     Dosage: 7.5 MG
  2. CARVEDILOL HEXAL [Concomitant]
     Dosage: 25 MG
     Route: 048
  3. ASPIRIN [Concomitant]
     Indication: CORONARY ARTERY DISEASE
     Dosage: 75 MG
     Route: 048
  4. AFIPRAN [Concomitant]
     Dosage: NOT MORE THAN 30 MG/DAY
  5. SIMVASTATIN [Concomitant]
     Dosage: 40 MG
  6. CITALOPRAM HYDROBROMIDE [Suspect]
     Indication: DEPRESSION
     Dosage: 80 MG MORNING AND 20 MG EVENING
     Route: 048
     Dates: start: 20110915, end: 20111129
  7. OXAZEPAM [Concomitant]
     Dosage: NOT MORE THAN 30 MG/DAY
  8. NITROGLYCERIN [Concomitant]

REACTIONS (5)
  - ARRHYTHMIA [None]
  - DYSKINESIA [None]
  - BRADYCARDIA [None]
  - SEROTONIN SYNDROME [None]
  - OVERDOSE [None]
